FAERS Safety Report 6119125-8 (Version None)
Quarter: 2009Q1

REPORT INFORMATION
  Report Type: 
  Country: None (occurrence: None)
  Receive Date: 20090316
  Receipt Date: 20090311
  Transmission Date: 20090719
  Serious: Yes (Hospitalization)
  Sender: FDA-Public Use
  Company Number: FR-CELGENEUS-056-C5013-07041111

PATIENT
  Sex: Female
  Weight: 50 kg

DRUGS (2)
  1. CC-5013 [Suspect]
     Route: 048
     Dates: start: 20060901, end: 20070201
  2. DEFEROXAMINE MESYLATE [Concomitant]
     Indication: IRON OVERLOAD
     Route: 058
     Dates: start: 20070402

REACTIONS (2)
  - ATRIAL FIBRILLATION [None]
  - PYREXIA [None]
